FAERS Safety Report 21138279 (Version 3)
Quarter: 2022Q3

REPORT INFORMATION
  Report Type: Spontaneous
  Country: IN (occurrence: IN)
  Receive Date: 20220727
  Receipt Date: 20220802
  Transmission Date: 20221027
  Serious: No
  Sender: FDA-Public Use
  Company Number: IN-LUPIN LIMITED-2022-09713

PATIENT
  Age: 46 Year
  Sex: Male

DRUGS (1)
  1. CEFADROXIL [Suspect]
     Active Substance: CEFADROXIL
     Indication: Tooth disorder
     Dosage: UNK
     Route: 048

REACTIONS (3)
  - Product odour abnormal [Unknown]
  - Poor quality product administered [Unknown]
  - No adverse event [Unknown]
